FAERS Safety Report 7260836-9 (Version None)
Quarter: 2011Q1

REPORT INFORMATION
  Report Type: 
  Country: None (occurrence: None)
  Receive Date: 20110130
  Receipt Date: 20101112
  Transmission Date: 20110831
  Serious: No
  Sender: FDA-Public Use
  Company Number: US-ABBOTT-10P-163-0685107-00

PATIENT
  Age: 30 Year
  Sex: Female

DRUGS (4)
  1. PAXIL [Concomitant]
     Indication: PRODUCT USED FOR UNKNOWN INDICATION
  2. HUMIRA [Suspect]
     Dates: start: 20101105, end: 20101105
  3. HUMIRA [Suspect]
  4. HUMIRA [Suspect]
     Indication: PSORIASIS
     Dates: start: 20101112

REACTIONS (1)
  - INJECTION SITE PAIN [None]
